FAERS Safety Report 23677164 (Version 1)
Quarter: 2024Q1

REPORT INFORMATION
  Report Type: Spontaneous
  Country: US (occurrence: US)
  Receive Date: 20240327
  Receipt Date: 20240327
  Transmission Date: 20240409
  Serious: No
  Sender: FDA-Public Use
  Company Number: US-PFIZER INC-202400068111

PATIENT
  Age: 28 Year
  Sex: Female
  Weight: 168.74 kg

DRUGS (1)
  1. GENOTROPIN [Suspect]
     Active Substance: SOMATROPIN
     Indication: Prader-Willi syndrome
     Dosage: SIX TIMES A WEEK, ONCE A DAY

REACTIONS (2)
  - Device breakage [Unknown]
  - Device use error [Unknown]
